FAERS Safety Report 10038454 (Version 2)
Quarter: 2014Q2

REPORT INFORMATION
  Report Type: Report from Study
  Country: US (occurrence: US)
  Receive Date: 20140326
  Receipt Date: 20140428
  Transmission Date: 20141212
  Serious: Yes (Hospitalization)
  Sender: FDA-Public Use
  Company Number: US-ALEXION PHARMACEUTICALS INC.-A201400928

PATIENT
  Sex: 0

DRUGS (17)
  1. SOLIRIS [Suspect]
     Indication: HAEMOLYTIC URAEMIC SYNDROME
     Dosage: 900 MG, QW
     Route: 042
  2. SOLIRIS [Suspect]
     Dosage: 1200 MG, Q2W
     Route: 042
     Dates: start: 20140309
  3. ACETAMINOPHEN [Concomitant]
     Indication: PAIN
     Dosage: 325 MG, Q6HR PRN
     Route: 065
     Dates: start: 20140326
  4. AMLODIPINE [Concomitant]
     Indication: HYPERTENSION
     Dosage: 5 MG, BID
     Route: 065
     Dates: start: 20140326
  5. ATENOLOL [Concomitant]
     Indication: HYPERTENSION
     Dosage: 25 MG, QD
     Route: 065
     Dates: start: 20140326
  6. BACTRIM [Concomitant]
     Indication: ANTIBIOTIC PROPHYLAXIS
     Dosage: 1 DF, QD
     Route: 048
     Dates: start: 20140326
  7. CIPROFLOXACIN [Concomitant]
     Indication: ANTIBIOTIC PROPHYLAXIS
     Dosage: 250 MG, QD
     Route: 065
     Dates: start: 20140326
  8. CATAPRES-TTS-2 [Concomitant]
     Indication: HYPERTENSION
     Dosage: 0.2 MG, Q TUES
     Route: 065
     Dates: start: 20140326
  9. COLACE [Concomitant]
     Indication: CONSTIPATION PROPHYLAXIS
     Dosage: 100 MG, BID
     Route: 065
     Dates: start: 20140326
  10. FAMOTIDINE [Concomitant]
     Indication: PRODUCT USED FOR UNKNOWN INDICATION
     Dosage: 20 MG, BID
     Route: 065
     Dates: start: 20140326
  11. FLUCONAZOLE [Concomitant]
     Indication: ANTIFUNGAL TREATMENT
     Dosage: 100 MG, QD
     Route: 065
     Dates: start: 20140326
  12. HYDROCODONE W/APAP                 /01554201/ [Concomitant]
     Indication: PAIN
     Dosage: 0.5 TO 1 TAB,TID PRN
     Route: 048
     Dates: start: 20140326
  13. MYCOPHENOLATE [Concomitant]
     Indication: IMMUNOSUPPRESSANT DRUG THERAPY
     Dosage: 500 MG, BID
     Route: 065
     Dates: start: 20140326
  14. PRAVASTATIN [Concomitant]
     Indication: DRUG THERAPY
     Dosage: 20 MG, QD
     Route: 065
     Dates: start: 20140326
  15. PROZAC [Concomitant]
     Indication: PRODUCT USED FOR UNKNOWN INDICATION
     Dosage: 20 MG, QD
     Route: 065
     Dates: start: 20140326
  16. TACROLIMUS [Concomitant]
     Indication: IMMUNOSUPPRESSANT DRUG THERAPY
     Dosage: 6 MG, BID
     Route: 065
     Dates: start: 20140326
  17. VALGANCICLOVIR [Concomitant]
     Indication: PRODUCT USED FOR UNKNOWN INDICATION
     Dosage: 450 MG, QD
     Route: 065
     Dates: start: 20140326

REACTIONS (3)
  - Ureteral stent removal [Unknown]
  - Vascular operation [Unknown]
  - Renal transplant [Unknown]
